FAERS Safety Report 10355920 (Version 1)
Quarter: 2014Q3

REPORT INFORMATION
  Report Type: Spontaneous
  Country: US (occurrence: US)
  Receive Date: 20140801
  Receipt Date: 20140801
  Transmission Date: 20150326
  Serious: Yes (Other)
  Sender: FDA-Public Use
  Company Number: US-AMGEN-USASP2014057090

PATIENT
  Sex: Female
  Weight: 44.9 kg

DRUGS (1)
  1. PROLIA [Suspect]
     Active Substance: DENOSUMAB
     Indication: OSTEOPOROSIS POSTMENOPAUSAL
     Route: 065

REACTIONS (5)
  - Osteoarthritis [Unknown]
  - Anxiety [Unknown]
  - Depression [Unknown]
  - General physical health deterioration [Unknown]
  - Hyperlipidaemia [Unknown]
